FAERS Safety Report 4355647-8 (Version None)
Quarter: 2004Q2

REPORT INFORMATION
  Report Type: 
  Country: None (occurrence: None)
  Receive Date: 20040505
  Receipt Date: 20040419
  Transmission Date: 20050107
  Serious: Yes (Other)
  Sender: FDA-Public Use
  Company Number: DSA_80624_2004

PATIENT
  Age: 54 Year
  Sex: Female

DRUGS (2)
  1. XYREM [Suspect]
     Indication: FIBROMYALGIA
     Dosage: 2.25 G TWICE NIGHTLY PO
     Route: 048
     Dates: start: 20040317, end: 20040416
  2. XYREM [Suspect]
     Indication: RESTLESS LEGS SYNDROME
     Dosage: 2.25 G TWICE NIGHTLY PO
     Route: 048
     Dates: start: 20040317, end: 20040416

REACTIONS (8)
  - ABNORMAL BEHAVIOUR [None]
  - AMNESIA [None]
  - ASTHENIA [None]
  - HEADACHE [None]
  - MUSCLE TWITCHING [None]
  - PHYSICAL ASSAULT [None]
  - RENAL PAIN [None]
  - TREMOR [None]
